FAERS Safety Report 15282524 (Version 1)
Quarter: 2018Q3

REPORT INFORMATION
  Report Type: Spontaneous
  Country: GB (occurrence: GB)
  Receive Date: 20180816
  Receipt Date: 20180816
  Transmission Date: 20181010
  Serious: Yes (Other)
  Sender: FDA-Public Use
  Company Number: GB-TEVA-2018-GB-941225

PATIENT
  Age: 51 Year
  Sex: Male
  Weight: 134 kg

DRUGS (8)
  1. ATORVASTATIN [Suspect]
     Active Substance: ATORVASTATIN
     Route: 065
     Dates: start: 20180329
  2. OMEPRAZOLE. [Concomitant]
     Active Substance: OMEPRAZOLE
     Dosage: 1 DOSAGE FORMS DAILY;
     Dates: start: 20171219
  3. COCODAMOL [Concomitant]
     Active Substance: ACETAMINOPHEN\CODEINE PHOSPHATE
     Dosage: ONE OR TWO TABLETS THREE OR FOUR TIMES A DAY
     Dates: start: 20180502, end: 20180601
  4. AMLODIPINE [Concomitant]
     Active Substance: AMLODIPINE BESYLATE
     Dosage: 1 DOSAGE FORMS DAILY;
     Route: 065
     Dates: start: 20171219
  5. DULOXETINE. [Concomitant]
     Active Substance: DULOXETINE
     Dosage: 2 DOSAGE FORMS DAILY;
     Route: 065
     Dates: start: 20171219, end: 20180601
  6. RAMIPRIL. [Concomitant]
     Active Substance: RAMIPRIL
     Dosage: 1 DOSAGE FORMS DAILY;
     Dates: start: 20171219
  7. FLUOXETINE [Concomitant]
     Active Substance: FLUOXETINE HYDROCHLORIDE
     Dosage: 3 DOSAGE FORMS DAILY; IN THE MORNING TO RAISE MOOD
     Dates: start: 20180622
  8. PREGABALIN. [Concomitant]
     Active Substance: PREGABALIN
     Dosage: TAKE 1 2?3 TIMES DAILY
     Dates: start: 20180601, end: 20180629

REACTIONS (1)
  - Depression suicidal [Recovering/Resolving]

NARRATIVE: CASE EVENT DATE: 20180706
